FAERS Safety Report 8202417-6 (Version None)
Quarter: 2012Q1

REPORT INFORMATION
  Report Type: 
  Country: None (occurrence: None)
  Receive Date: 20120312
  Receipt Date: 20110825
  Transmission Date: 20120608
  Serious: Yes (Hospitalization)
  Sender: FDA-Public Use
  Company Number: US-ABBOTT-11P-163-0840379-00

PATIENT
  Sex: Male
  Weight: 55.615 kg

DRUGS (3)
  1. DEPAKOTE [Suspect]
     Indication: STATUS EPILEPTICUS
  2. DIVALPROEX SODIUM [Suspect]
     Indication: PRODUCT USED FOR UNKNOWN INDICATION
     Dates: end: 20110201
  3. DEPAKOTE [Suspect]
     Dates: start: 20110201

REACTIONS (1)
  - CONVULSION [None]
